FAERS Safety Report 5811813-3 (Version None)
Quarter: 2008Q3

REPORT INFORMATION
  Report Type: 
  Country: None (occurrence: None)
  Receive Date: 20080715
  Receipt Date: 20080715
  Transmission Date: 20090109
  Serious: Yes (Other)
  Sender: FDA-Public Use
  Company Number: None

PATIENT
  Age: 50 Year
  Sex: Female
  Weight: 73.9363 kg

DRUGS (2)
  1. LYRICA [Suspect]
     Indication: FIBROMYALGIA
     Dosage: 75 MG HS PO
     Route: 048
     Dates: start: 20080401, end: 20080701
  2. LYRICA [Suspect]
     Indication: FIBROMYALGIA
     Dosage: 75 MG HS PO
     Route: 048
     Dates: start: 20070501

REACTIONS (2)
  - IMPAIRED DRIVING ABILITY [None]
  - SOMNOLENCE [None]
